FAERS Safety Report 10050327 (Version 1)
Quarter: 2014Q1

REPORT INFORMATION
  Report Type: Spontaneous
  Country: US (occurrence: None)
  Receive Date: 20140331
  Receipt Date: 20140331
  Transmission Date: 20141002
  Serious: Yes (Hospitalization)
  Sender: FDA-Public Use
  Company Number: None

PATIENT
  Age: 28 Year
  Sex: Female
  Weight: 70.31 kg

DRUGS (1)
  1. AZURETTE [Suspect]
     Indication: DYSMENORRHOEA
     Dosage: 1 ACTIVE PILL CONTINUOUSLY
     Route: 048
     Dates: start: 20120822, end: 20130822

REACTIONS (8)
  - Dyspnoea [None]
  - Pyrexia [None]
  - Oedema peripheral [None]
  - Wheezing [None]
  - Dizziness [None]
  - Loss of consciousness [None]
  - Syncope [None]
  - Pulmonary embolism [None]
